FAERS Safety Report 11371852 (Version 1)
Quarter: 2015Q3

REPORT INFORMATION
  Report Type: Report from Study
  Country: MX (occurrence: MX)
  Receive Date: 20150812
  Receipt Date: 20150812
  Transmission Date: 20151125
  Serious: Yes (Hospitalization)
  Sender: FDA-Public Use
  Company Number: PHHY2015MX095929

PATIENT
  Sex: Male

DRUGS (2)
  1. OMNITROPE [Suspect]
     Active Substance: SOMATROPIN
     Indication: BODY HEIGHT BELOW NORMAL
     Dosage: 1.6 MG
     Route: 065
     Dates: start: 201411, end: 20150720
  2. OMNITROPE [Suspect]
     Active Substance: SOMATROPIN
     Dosage: 1.6 MG
     Route: 065
     Dates: start: 20150801

REACTIONS (1)
  - Appendicitis [Recovered/Resolved]
